FAERS Safety Report 11911398 (Version 3)
Quarter: 2016Q1

REPORT INFORMATION
  Report Type: Report from Study
  Country: US (occurrence: US)
  Receive Date: 20160112
  Receipt Date: 20160202
  Transmission Date: 20160526
  Serious: Yes (Hospitalization, Other)
  Sender: FDA-Public Use
  Company Number: US-UCBSA-2014022902

PATIENT
  Age: 57 Year
  Sex: Male
  Weight: 113 kg

DRUGS (7)
  1. LEVETIRACETAM. [Suspect]
     Active Substance: LEVETIRACETAM
     Dosage: 500 MG 6 X DAILY
     Route: 048
     Dates: start: 20111103
  2. LEVETIRACETAM. [Suspect]
     Active Substance: LEVETIRACETAM
     Dosage: 1500 MG, 2X/DAY (BID) (500 MG X 3 BID)
     Route: 048
  3. LEXAPRO [Concomitant]
     Active Substance: ESCITALOPRAM OXALATE
     Indication: PRODUCT USED FOR UNKNOWN INDICATION
     Dosage: 10 MG, ONCE DAILY (QD)
     Route: 048
  4. METOPROLOL. [Concomitant]
     Active Substance: METOPROLOL
     Indication: PRODUCT USED FOR UNKNOWN INDICATION
     Dosage: 25 MG, ONCE DAILY (QD)
     Route: 048
  5. METROGEL [Concomitant]
     Active Substance: METRONIDAZOLE
     Indication: NASAL DISORDER
     Dosage: UNK
     Route: 061
  6. CARBATROL [Concomitant]
     Active Substance: CARBAMAZEPINE
     Indication: SEIZURE
     Dosage: 300 MG, 2 CAPS TWICE A DAY
     Route: 048
  7. LEVETIRACETAM. [Suspect]
     Active Substance: LEVETIRACETAM
     Indication: SEIZURE
     Dosage: 41/2 TABLET, MG 2X/DAY (BID)
     Route: 048

REACTIONS (6)
  - Feeling abnormal [Recovered/Resolved]
  - Thinking abnormal [Unknown]
  - Pharyngitis streptococcal [Recovered/Resolved]
  - Influenza [Recovered/Resolved]
  - Sinus disorder [Recovered/Resolved]
  - Heart rate irregular [Recovered/Resolved]

NARRATIVE: CASE EVENT DATE: 201412
